FAERS Safety Report 25656873 (Version 1)
Quarter: 2025Q3

REPORT INFORMATION
  Report Type: Report from Study
  Country: US (occurrence: US)
  Receive Date: 20250807
  Receipt Date: 20250807
  Transmission Date: 20251021
  Serious: No
  Sender: MALLINCKRODT
  Company Number: US-MALLINCKRODT-MNK202504462

PATIENT
  Sex: Female

DRUGS (1)
  1. CORTICOTROPIN [Suspect]
     Active Substance: CORTICOTROPIN
     Indication: Psoriatic arthropathy

REACTIONS (5)
  - Gastrointestinal disorder [Unknown]
  - Gait disturbance [Unknown]
  - Ill-defined disorder [Unknown]
  - Bone swelling [Unknown]
  - Joint swelling [Unknown]
